FAERS Safety Report 21131565 (Version 1)
Quarter: 2022Q3

REPORT INFORMATION
  Report Type: Spontaneous
  Country: US (occurrence: US)
  Receive Date: 20220726
  Receipt Date: 20220726
  Transmission Date: 20221027
  Serious: No
  Sender: FDA-Public Use
  Company Number: US-BAYER-2022A104271

PATIENT
  Age: 63 Year
  Sex: Female

DRUGS (1)
  1. MIRALAX [Suspect]
     Active Substance: POLYETHYLENE GLYCOL 3350
     Indication: Colonoscopy
     Dosage: 17G EVERY 30 MINS FOR 5 DOSES DOSE
     Route: 048

REACTIONS (2)
  - Off label use [Unknown]
  - Extra dose administered [None]

NARRATIVE: CASE EVENT DATE: 20220601
